FAERS Safety Report 9862037 (Version 2)
Quarter: 2014Q1

REPORT INFORMATION
  Report Type: Spontaneous
  Country: FR (occurrence: FR)
  Receive Date: 20140203
  Receipt Date: 20140303
  Transmission Date: 20141002
  Serious: Yes (Other)
  Sender: FDA-Public Use
  Company Number: FR-SA-2014SA009772

PATIENT
  Sex: Male

DRUGS (5)
  1. CLOPIDOGREL BISULFATE [Suspect]
     Indication: PRODUCT USED FOR UNKNOWN INDICATION
     Route: 048
     Dates: start: 201401
  2. EURESPAL [Concomitant]
  3. LEVOTHYROX [Concomitant]
  4. COTAREG [Concomitant]
  5. DOLIPRANE [Concomitant]

REACTIONS (1)
  - Cerebrovascular accident [Unknown]
